FAERS Safety Report 5126248-9 (Version None)
Quarter: 2006Q4

REPORT INFORMATION
  Report Type: 
  Country: None (occurrence: None)
  Receive Date: 20061012
  Receipt Date: 20060530
  Transmission Date: 20070319
  Serious: Yes (Death, Hospitalization, Other)
  Sender: FDA-Public Use
  Company Number: FR-ABBOTT-06P-056-0334510-00

PATIENT
  Age: 74 Year
  Sex: Female

DRUGS (3)
  1. ADALIMUMAB [Suspect]
     Indication: POLYARTHRITIS
     Route: 058
     Dates: start: 20040701
  2. ADALIMUMAB [Suspect]
     Route: 058
     Dates: start: 20040201, end: 20040701
  3. AZATHIOPRINE [Concomitant]
     Indication: DRUG USE FOR UNKNOWN INDICATION

REACTIONS (6)
  - ALVEOLITIS FIBROSING [None]
  - CHLAMYDIAL INFECTION [None]
  - EJECTION FRACTION DECREASED [None]
  - PULMONARY ARTERIAL PRESSURE ABNORMAL [None]
  - RESPIRATORY DISTRESS [None]
  - RESPIRATORY FAILURE [None]
